FAERS Safety Report 4934933-4 (Version None)
Quarter: 2006Q1

REPORT INFORMATION
  Report Type: 
  Country: None (occurrence: None)
  Receive Date: 20060306
  Receipt Date: 20060306
  Transmission Date: 20060701
  Serious: Yes (Hospitalization)
  Sender: FDA-Public Use
  Company Number: None

PATIENT
  Age: 81 Year
  Sex: Female
  Weight: 81 kg

DRUGS (1)
  1. EXELON [Suspect]
     Indication: DEMENTIA
     Dosage: 1.5 MG BID PO
     Route: 048

REACTIONS (13)
  - ABASIA [None]
  - ASTHENIA [None]
  - BLOOD CREATININE INCREASED [None]
  - BLOOD GLUCOSE INCREASED [None]
  - BLOOD PRESSURE SYSTOLIC INCREASED [None]
  - BODY TEMPERATURE DECREASED [None]
  - DIARRHOEA [None]
  - EPISTAXIS [None]
  - HEART RATE DECREASED [None]
  - HYPERTENSION [None]
  - LOSS OF CONSCIOUSNESS [None]
  - RESPIRATORY RATE INCREASED [None]
  - THROMBOSIS [None]
